FAERS Safety Report 10030309 (Version 2)
Quarter: 2014Q1

REPORT INFORMATION
  Report Type: Spontaneous
  Country: US (occurrence: US)
  Receive Date: 20140323
  Receipt Date: 20140323
  Transmission Date: 20141002
  Serious: No
  Sender: FDA-Public Use
  Company Number: US-ALLERGAN-1307141US

PATIENT
  Age: 75 Year
  Sex: Female
  Weight: 62.59 kg

DRUGS (2)
  1. LATISSE 0.03% [Suspect]
     Indication: PRODUCT USED FOR UNKNOWN INDICATION
     Dosage: UNK, IN THE EVENING
     Dates: start: 2013
  2. ACTONEL [Concomitant]
     Indication: OSTEOPOROSIS
     Dosage: UNK, MONTHLY

REACTIONS (2)
  - Alopecia [Unknown]
  - Drug ineffective [Unknown]
